FAERS Safety Report 7148691-9 (Version None)
Quarter: 2010Q4

REPORT INFORMATION
  Report Type: 
  Country: None (occurrence: None)
  Receive Date: 20101209
  Receipt Date: 20101004
  Transmission Date: 20110411
  Serious: No
  Sender: FDA-Public Use
  Company Number: US-BAYER-201022271BCC

PATIENT
  Sex: Male
  Weight: 136.36 kg

DRUGS (9)
  1. ALEVE (CAPLET) [Suspect]
     Indication: ANALGESIC THERAPY
     Dosage: 2 DF, BID
     Route: 048
  2. HUMALOG [Concomitant]
  3. HUMALOG [Concomitant]
  4. FUROSEMIDE [Concomitant]
  5. AMITRIPTYLINE HCL [Concomitant]
  6. NIACIN [Concomitant]
     Dosage: 250 MG, BID
  7. GEMFIBROZIL [Concomitant]
     Dosage: 600 MG, UNK
  8. FISH OIL [Concomitant]
     Dosage: 1000 MG, UNK
  9. GUAIFENESIN [Concomitant]

REACTIONS (1)
  - CONSTIPATION [None]
